FAERS Safety Report 6335955-1 (Version None)
Quarter: 2009Q3

REPORT INFORMATION
  Report Type: 
  Country: None (occurrence: None)
  Receive Date: 20090831
  Receipt Date: 20090831
  Transmission Date: 20100115
  Serious: Yes (Other)
  Sender: FDA-Public Use
  Company Number: None

PATIENT
  Sex: Female
  Weight: 112.0385 kg

DRUGS (1)
  1. LEVOTHYROXINE SODIUM [Suspect]
     Indication: HYPOTHYROIDISM
     Dosage: 0.175 MG ONCE PO QD
     Route: 048
     Dates: start: 20080601, end: 20090101

REACTIONS (3)
  - FLUID RETENTION [None]
  - PRODUCT SUBSTITUTION ISSUE [None]
  - THYROID FUNCTION TEST ABNORMAL [None]
